FAERS Safety Report 13163961 (Version 1)
Quarter: 2017Q1

REPORT INFORMATION
  Report Type: Spontaneous
  Country: US (occurrence: US)
  Receive Date: 20170130
  Receipt Date: 20170130
  Transmission Date: 20170428
  Serious: Yes (Hospitalization)
  Sender: FDA-Public Use
  Company Number: US-LPDUSPRD-20170046

PATIENT
  Age: 61 Year
  Sex: Male
  Weight: 88 kg

DRUGS (6)
  1. MEPIVACAINE [Suspect]
     Active Substance: MEPIVACAINE\MEPIVACAINE HYDROCHLORIDE
     Dosage: 50 MG OF 2 %
     Route: 065
  2. EPINEPHRINE INJECTION, USP (1071-25) [Suspect]
     Active Substance: EPINEPHRINE
     Dosage: 5 MCG/KG
     Route: 065
  3. PRESERVATIVE FREE MORPHINE [Concomitant]
     Dosage: 10 MG
     Route: 051
  4. BUPIVACAINE. [Suspect]
     Active Substance: BUPIVACAINE
     Dosage: 20 ML OF 0.25%
     Route: 065
  5. KETOROLAC [Concomitant]
     Active Substance: KETOROLAC\KETOROLAC TROMETHAMINE
     Dosage: 30 MG
     Route: 051
  6. ROPIVACAINE [Concomitant]
     Active Substance: ROPIVACAINE
     Dosage: 0.2% AT 8 ML/HR
     Route: 042

REACTIONS (1)
  - Myositis [Unknown]
